FAERS Safety Report 7618805-2 (Version None)
Quarter: 2011Q3

REPORT INFORMATION
  Report Type: 
  Country: None (occurrence: None)
  Receive Date: 20110718
  Receipt Date: 20091208
  Transmission Date: 20111222
  Serious: Yes (Other)
  Sender: FDA-Public Use
  Company Number: US-BAYER-200832726NA

PATIENT
  Age: 69 Year
  Sex: Female
  Weight: 69.388 kg

DRUGS (33)
  1. MAGNEVIST [Suspect]
     Dosage: UNK UNK, ONCE
     Dates: start: 20051110, end: 20051110
  2. WARFARIN SODIUM [Concomitant]
  3. INSULIN [Concomitant]
  4. PREDNISONE [Concomitant]
  5. VORICONAZOLE [Concomitant]
  6. TUMS [CALCIUM CARBONATE] [Concomitant]
  7. OPTIMARK [Suspect]
     Indication: NUCLEAR MAGNETIC RESONANCE IMAGING
     Dosage: UNK
     Dates: start: 20040210, end: 20040210
  8. AMITRIPTYLINE HCL [Concomitant]
  9. NORVASC [Concomitant]
  10. FERROUS SULFATE TAB [Concomitant]
  11. NEPHROCAPS [Concomitant]
  12. MAGNEVIST [Suspect]
     Dosage: UNK UNK, ONCE
     Dates: start: 20050908, end: 20050908
  13. MAGNEVIST [Suspect]
     Dosage: 17 ML, ONCE
     Dates: start: 20060923, end: 20060923
  14. OPTIMARK [Suspect]
     Dosage: UNK
     Dates: start: 20040804, end: 20040804
  15. RENAGEL [Concomitant]
  16. OPTIMARK [Suspect]
     Dosage: UNK
     Dates: start: 20040216, end: 20040216
  17. OPTIMARK [Suspect]
     Dosage: 15 ML, ONCE
     Route: 042
     Dates: start: 20041028, end: 20041028
  18. FOSRENOL [Concomitant]
  19. MAGNEVIST [Suspect]
     Dosage: UNK UNK, ONCE
     Dates: start: 20050908, end: 20050908
  20. FLUCONAZOLE [Concomitant]
  21. LANOXIN [Concomitant]
  22. PROGRAF [Concomitant]
  23. EPOGEN [Concomitant]
  24. ASPIRIN [Concomitant]
  25. MAGNEVIST [Suspect]
     Indication: NUCLEAR MAGNETIC RESONANCE IMAGING
     Dosage: UNK UNK, ONCE
     Dates: start: 20050224, end: 20050224
  26. IMURAN [Concomitant]
  27. MAGNEVIST [Suspect]
     Dosage: UNK UNK, ONCE
     Dates: start: 20060523, end: 20060523
  28. AMBIEN CR [Concomitant]
  29. HYDROCODONE BITARTRATE AND ACETAMINOPHEN [Concomitant]
  30. GLIPIZIDE [Concomitant]
  31. PLAQUENIL [Concomitant]
  32. MAGNEVIST [Suspect]
     Dosage: UNK UNK, ONCE
     Dates: start: 20050224, end: 20050224
  33. MAGNEVIST [Suspect]
     Dosage: UNK UNK, ONCE
     Dates: start: 20051110, end: 20051110

REACTIONS (19)
  - NEPHROGENIC SYSTEMIC FIBROSIS [None]
  - RASH MACULAR [None]
  - ANHEDONIA [None]
  - DEPRESSION [None]
  - PAIN OF SKIN [None]
  - EMOTIONAL DISTRESS [None]
  - SKIN INDURATION [None]
  - JOINT STIFFNESS [None]
  - ANXIETY [None]
  - SKIN DISCOLOURATION [None]
  - SCAR [None]
  - MOBILITY DECREASED [None]
  - SKIN TIGHTNESS [None]
  - OEDEMA PERIPHERAL [None]
  - EXTREMITY CONTRACTURE [None]
  - EXFOLIATIVE RASH [None]
  - PAIN [None]
  - SKIN HYPERTROPHY [None]
  - DEFORMITY [None]
